FAERS Safety Report 9057059 (Version 1)
Quarter: 2013Q1

REPORT INFORMATION
  Report Type: Report from Study
  Country: US (occurrence: US)
  Receive Date: 20130131
  Receipt Date: 20130131
  Transmission Date: 20140127
  Serious: No
  Sender: FDA-Public Use
  Company Number: US-ABBOTT-12P-163-0996359-00

PATIENT
  Age: 58 Year
  Sex: Male

DRUGS (9)
  1. HUMIRA [Suspect]
     Indication: CROHN^S DISEASE
     Dosage: LOADING DOSE
     Dates: start: 20121010
  2. AMITRIPTYLINE [Concomitant]
     Indication: INSOMNIA
     Dosage: 25 MG DAILY
  3. BUDESONIDE [Concomitant]
     Indication: CROHN^S DISEASE
     Dosage: 3 MG DAILY
  4. CITALOPRAM [Concomitant]
     Indication: DEPRESSION
     Dosage: 10 MG DAILY
  5. DULCOLAX [Concomitant]
     Indication: PRODUCT USED FOR UNKNOWN INDICATION
     Dosage: 5 MG DAILY
  6. MIRALAX [Concomitant]
     Indication: PRODUCT USED FOR UNKNOWN INDICATION
     Dosage: 1 CAPSULE DAILY AS NEEDED
  7. OXCARBAZEPINE [Concomitant]
     Indication: NERVOUS SYSTEM DISORDER
  8. OXYBUTYNIN [Concomitant]
     Indication: MICTURITION DISORDER
  9. RANTIDINE [Concomitant]
     Indication: CROHN^S DISEASE

REACTIONS (1)
  - Dizziness [Not Recovered/Not Resolved]
